FAERS Safety Report 5219027-5 (Version None)
Quarter: 2007Q1

REPORT INFORMATION
  Report Type: 
  Country: None (occurrence: None)
  Receive Date: 20070125
  Receipt Date: 20070118
  Transmission Date: 20070707
  Serious: Yes (Death)
  Sender: FDA-Public Use
  Company Number: US-ELI_LILLY_AND_COMPANY-US200701003483

PATIENT
  Age: 72 Year
  Sex: Male

DRUGS (5)
  1. ILETIN [Suspect]
     Indication: DIABETES MELLITUS
     Dosage: UNK, UNKNOWN
     Dates: start: 19700101
  2. ILETIN [Suspect]
     Dosage: UNK, UNKNOWN
     Dates: start: 19700101
  3. ILETIN [Suspect]
     Dosage: UNK, UNKNOWN
     Dates: start: 19700101
  4. ALL OTHER THERAPEUTIC PRODUCTS [Concomitant]
     Dosage: UNK, UNKNOWN
  5. ANTI-DIABETICS [Concomitant]
     Dosage: UNK, UNKNOWN

REACTIONS (4)
  - CARDIAC DISORDER [None]
  - CARDIAC FAILURE CONGESTIVE [None]
  - DRUG INEFFECTIVE [None]
  - EJECTION FRACTION DECREASED [None]
